FAERS Safety Report 8205783-0 (Version None)
Quarter: 2012Q1

REPORT INFORMATION
  Report Type: 
  Country: None (occurrence: None)
  Receive Date: 20120313
  Receipt Date: 20120307
  Transmission Date: 20120608
  Serious: Yes (Death, Other)
  Sender: FDA-Public Use
  Company Number: AU-PFIZER INC-2011301248

PATIENT
  Sex: Male

DRUGS (2)
  1. ERAXIS [Suspect]
     Indication: CANDIDIASIS
  2. FLUCONAZOLE [Suspect]

REACTIONS (2)
  - DRUG INEFFECTIVE [None]
  - DEATH [None]
